FAERS Safety Report 7984685-9 (Version None)
Quarter: 2011Q4

REPORT INFORMATION
  Report Type: 
  Country: None (occurrence: None)
  Receive Date: 20111216
  Receipt Date: 20110907
  Transmission Date: 20120403
  Serious: No
  Sender: FDA-Public Use
  Company Number: US-GLAXOSMITHKLINE-A0943757A

PATIENT
  Sex: Female

DRUGS (5)
  1. PROMACTA [Suspect]
     Indication: PRODUCT USED FOR UNKNOWN INDICATION
     Dosage: 75MG PER DAY
     Route: 048
     Dates: start: 20090924
  2. LISINOPRIL [Concomitant]
  3. ONDANSETRON [Concomitant]
  4. GABAPENTIN [Concomitant]
  5. FLUOXETINE [Concomitant]

REACTIONS (3)
  - EYE DISORDER [None]
  - TREATMENT NONCOMPLIANCE [None]
  - MALAISE [None]
